FAERS Safety Report 7829110-3 (Version None)
Quarter: 2011Q4

REPORT INFORMATION
  Report Type: 
  Country: None (occurrence: None)
  Receive Date: 20111020
  Receipt Date: 20111006
  Transmission Date: 20120403
  Serious: Yes (Other)
  Sender: FDA-Public Use
  Company Number: PHHY2011SK82692

PATIENT
  Age: 66 Year
  Sex: Female

DRUGS (5)
  1. GLEEVEC [Suspect]
     Dosage: UNK
     Route: 065
  2. FRAXIPARINE [Concomitant]
     Dosage: UNK UKN, UNK
     Route: 065
  3. ANALGESICS [Concomitant]
     Dosage: UNK
     Route: 065
  4. GLEEVEC [Suspect]
     Dosage: 800 MG, UNK
  5. ANTIBIOTICS [Concomitant]
     Dosage: UNK UKN, UNK

REACTIONS (4)
  - LIVER DISORDER [None]
  - NEOPLASM MALIGNANT [None]
  - ADRENAL ADENOMA [None]
  - GASTROINTESTINAL STROMAL TUMOUR [None]
